FAERS Safety Report 26156078 (Version 1)
Quarter: 2025Q4

REPORT INFORMATION
  Report Type: Spontaneous
  Country: US (occurrence: US)
  Receive Date: 20251215
  Receipt Date: 20251215
  Transmission Date: 20260117
  Serious: No
  Sender: BAYER HEALTHCARE LLC
  Company Number: US-BAYER-2025A164246

PATIENT
  Age: 66 Year
  Sex: Female

DRUGS (1)
  1. ALEVE [Suspect]
     Active Substance: NAPROXEN SODIUM
     Indication: Pain
     Dosage: HALF FULL, ONCE IN A WHILE
     Route: 048

REACTIONS (2)
  - Expired product administered [Recovered/Resolved]
  - Incorrect dose administered [Unknown]
